FAERS Safety Report 21208015 (Version 3)
Quarter: 2022Q3

REPORT INFORMATION
  Report Type: Spontaneous
  Country: JP (occurrence: JP)
  Receive Date: 20220812
  Receipt Date: 20220923
  Transmission Date: 20221026
  Serious: Yes (Other)
  Sender: FDA-Public Use
  Company Number: JP-OTSUKA-2022_038640

PATIENT
  Age: 30 Year
  Sex: Female

DRUGS (11)
  1. REXULTI [Suspect]
     Active Substance: BREXPIPRAZOLE
     Indication: Product used for unknown indication
     Dosage: 1 MG
     Route: 065
     Dates: start: 20201118, end: 20211105
  2. REXULTI [Suspect]
     Active Substance: BREXPIPRAZOLE
     Dosage: 1MG
     Route: 065
     Dates: start: 20211121
  3. REXULTI [Suspect]
     Active Substance: BREXPIPRAZOLE
     Dosage: INCREASED TO 2 MG
     Route: 065
     Dates: start: 202204
  4. REXULTI [Suspect]
     Active Substance: BREXPIPRAZOLE
     Dosage: REDUCED TO 1 MG
     Route: 065
     Dates: start: 20220422, end: 202205
  5. REXULTI [Suspect]
     Active Substance: BREXPIPRAZOLE
     Dosage: 1MG
     Route: 065
     Dates: start: 202206
  6. REXULTI [Suspect]
     Active Substance: BREXPIPRAZOLE
     Dosage: DECREASED TO 0.5MG
     Route: 065
  7. BLONANSERIN [Suspect]
     Active Substance: BLONANSERIN
     Indication: Product used for unknown indication
     Dosage: 4MG
     Route: 065
     Dates: start: 20211105, end: 202204
  8. BLONANSERIN [Suspect]
     Active Substance: BLONANSERIN
     Dosage: 15MG
     Route: 065
     Dates: end: 202011
  9. BLONANSERIN [Suspect]
     Active Substance: BLONANSERIN
     Dosage: 8MG
     Route: 065
     Dates: start: 20201118
  10. BLONANSERIN [Suspect]
     Active Substance: BLONANSERIN
     Dosage: 6MG
     Route: 065
     Dates: start: 202103
  11. INVEGA [Suspect]
     Active Substance: PALIPERIDONE
     Indication: Product used for unknown indication
     Dosage: 3MG
     Route: 065
     Dates: start: 202205, end: 20220722

REACTIONS (3)
  - Habitual abortion [Unknown]
  - Dystonia [Not Recovered/Not Resolved]
  - Maternal exposure during pregnancy [Unknown]

NARRATIVE: CASE EVENT DATE: 20211101
